FAERS Safety Report 5718204-4 (Version None)
Quarter: 2008Q2

REPORT INFORMATION
  Report Type: 
  Country: None (occurrence: None)
  Receive Date: 20080425
  Receipt Date: 20080417
  Transmission Date: 20081010
  Serious: Yes (Hospitalization)
  Sender: FDA-Public Use
  Company Number: JP-ROCHE-557432

PATIENT
  Sex: Male
  Weight: 46.3 kg

DRUGS (9)
  1. CAPECITABINE [Suspect]
     Indication: GASTRIC CANCER
     Dosage: UNIT: MG/DAY. FREQUENCY: D1-14Q3W.
     Route: 048
     Dates: start: 20080115, end: 20080331
  2. TRASTUZUMAB [Suspect]
     Indication: GASTRIC CANCER
     Dosage: DOSAGE FORM: INFUSION.
     Route: 042
     Dates: start: 20080115
  3. CISPLATIN [Suspect]
     Indication: GASTRIC CANCER
     Dosage: DOSAGE FORM: INFUSION.
     Route: 042
     Dates: start: 20080115
  4. ZOLPIDEM TARTRATE [Concomitant]
     Dates: start: 20071217, end: 20080406
  5. MAGNESIUM OXIDE [Concomitant]
     Dates: start: 20080322, end: 20080407
  6. CALCIUM LACTATE [Concomitant]
     Dates: start: 20080319, end: 20080407
  7. ALFACALCIDOL [Concomitant]
     Dates: start: 20080401, end: 20080407
  8. 1 CONCOMITANT DRUG [Concomitant]
     Dosage: DRUG NAME: CALCIUM INFUSION.
     Dates: start: 20080401
  9. VITAMIN B-12 [Concomitant]
     Dates: start: 20080403

REACTIONS (8)
  - ANAEMIA MACROCYTIC [None]
  - DEHYDRATION [None]
  - DISSEMINATED INTRAVASCULAR COAGULATION [None]
  - GENERAL PHYSICAL HEALTH DETERIORATION [None]
  - HYPOCALCAEMIA [None]
  - ILEUS PARALYTIC [None]
  - SEPSIS [None]
  - TETANY [None]
